FAERS Safety Report 20008790 (Version 1)
Quarter: 2021Q4

REPORT INFORMATION
  Report Type: Spontaneous
  Country: US (occurrence: US)
  Receive Date: 20211028
  Receipt Date: 20211028
  Transmission Date: 20220303
  Serious: No
  Sender: FDA-Public Use
  Company Number: US-PFIZER INC-2020395173

PATIENT
  Age: 88 Year
  Sex: Female
  Weight: 62.14 kg

DRUGS (3)
  1. LYRICA [Suspect]
     Active Substance: PREGABALIN
     Indication: Neuralgia
     Dosage: 50 MG, AS NEEDED (1 (ONE) CAPSULE BY MOUTH THREE TIMES A DAY AS NEEDED)
     Route: 048
  2. LYRICA [Suspect]
     Active Substance: PREGABALIN
     Indication: Pain
  3. LYRICA [Suspect]
     Active Substance: PREGABALIN
     Indication: Neck pain

REACTIONS (2)
  - Prescription drug used without a prescription [Unknown]
  - Eye disorder [Unknown]
